FAERS Safety Report 9234930 (Version 2)
Quarter: 2013Q2

REPORT INFORMATION
  Report Type: Spontaneous
  Country: US (occurrence: US)
  Receive Date: 20130416
  Receipt Date: 20130416
  Transmission Date: 20140414
  Serious: No
  Sender: FDA-Public Use
  Company Number: US-BANPHARM-20120310

PATIENT
  Age: 83 Year
  Sex: Female
  Weight: 63.05 kg

DRUGS (11)
  1. ALEVE LIQUID GELS 220 MG [Suspect]
     Indication: ARTHRITIS
     Dosage: 2DF, PRN,
     Route: 048
     Dates: start: 2011
  2. ALEVE CAPLETS [Suspect]
     Indication: ARTHRITIS
     Dates: start: 2011
  3. BYSTOLIC [Concomitant]
  4. SINGULAIR [Concomitant]
  5. GLYBURIDE [Concomitant]
  6. LEVOTHYROXINE [Concomitant]
  7. CRESTOR [Concomitant]
  8. CITRICAL [Concomitant]
  9. METFORMIN [Concomitant]
  10. CARTIA [Concomitant]
  11. LOSARTAN HCTZ [Concomitant]

REACTIONS (2)
  - Drug effect incomplete [Unknown]
  - Drug ineffective [Unknown]
